FAERS Safety Report 20674664 (Version 1)
Quarter: 2022Q2

REPORT INFORMATION
  Report Type: Spontaneous
  Country: US (occurrence: US)
  Receive Date: 20220405
  Receipt Date: 20220405
  Transmission Date: 20220720
  Serious: Yes (Hospitalization, Other)
  Sender: FDA-Public Use
  Company Number: US-JNJFOC-20220353520

PATIENT
  Age: 80 Year
  Sex: Female
  Weight: 80.948 kg

DRUGS (8)
  1. TRACLEER [Interacting]
     Active Substance: BOSENTAN
     Indication: Product used for unknown indication
     Route: 048
     Dates: end: 202203
  2. TRACLEER [Interacting]
     Active Substance: BOSENTAN
     Route: 048
  3. FLUCONAZOLE [Interacting]
     Active Substance: FLUCONAZOLE
  4. LEVOFLOXACIN [Interacting]
     Active Substance: LEVOFLOXACIN
  5. VENETOCLAX [Interacting]
     Active Substance: VENETOCLAX
  6. ORENITRAM [Suspect]
     Active Substance: TREPROSTINIL
     Indication: Pulmonary arterial hypertension
     Route: 048
     Dates: start: 20210106
  7. ORENITRAM [Suspect]
     Active Substance: TREPROSTINIL
     Route: 048
  8. SILDENAFIL CITRATE [Concomitant]
     Active Substance: SILDENAFIL CITRATE

REACTIONS (4)
  - Leukaemia [Unknown]
  - Full blood count abnormal [Unknown]
  - Haemoglobin decreased [Unknown]
  - Drug interaction [Unknown]

NARRATIVE: CASE EVENT DATE: 20220201
